FAERS Safety Report 15450132 (Version 1)
Quarter: 2018Q4

REPORT INFORMATION
  Report Type: Spontaneous
  Country: US (occurrence: US)
  Receive Date: 20181001
  Receipt Date: 20181001
  Transmission Date: 20190204
  Serious: No
  Sender: FDA-Public Use
  Company Number: US-PFIZER INC-2018388602

PATIENT
  Sex: Female

DRUGS (5)
  1. TYROSINE [Concomitant]
     Active Substance: TYROSINE
     Dosage: 94 UG, UNK
  2. CYTOMEL [Suspect]
     Active Substance: LIOTHYRONINE SODIUM
     Dosage: 25 UG, DAILY
  3. HYDROCHLOROTHIAZIDE. [Concomitant]
     Active Substance: HYDROCHLOROTHIAZIDE
     Indication: BLOOD PRESSURE ABNORMAL
     Dosage: UNK
  4. TYROSINE [Concomitant]
     Active Substance: TYROSINE
     Indication: TRI-IODOTHYRONINE
     Dosage: 88 UG, UNK
     Dates: start: 201404
  5. CYTOMEL [Suspect]
     Active Substance: LIOTHYRONINE SODIUM
     Indication: TRI-IODOTHYRONINE
     Dosage: 5 UG, UNK
     Dates: start: 201406

REACTIONS (1)
  - Palpitations [Unknown]
